FAERS Safety Report 19649845 (Version 1)
Quarter: 2021Q3

REPORT INFORMATION
  Report Type: Report from Study
  Country: US (occurrence: US)
  Receive Date: 20210802
  Receipt Date: 20210802
  Transmission Date: 20211014
  Serious: No
  Sender: FDA-Public Use
  Company Number: US-SUNOVION-2021SUN002732

PATIENT
  Age: 75 Year
  Sex: Male

DRUGS (1)
  1. KYNMOBI [Suspect]
     Active Substance: APOMORPHINE HYDROCHLORIDE
     Indication: PARKINSON^S DISEASE
     Dosage: 10 MG
     Route: 060
     Dates: start: 20210715, end: 20210715

REACTIONS (10)
  - Yawning [Unknown]
  - Nausea [Unknown]
  - Drooling [Unknown]
  - Dizziness [Unknown]
  - Pallor [Unknown]
  - Blood pressure decreased [Unknown]
  - Product physical issue [Unknown]
  - Dysstasia [Unknown]
  - Rhinorrhoea [Unknown]
  - Somnolence [Unknown]

NARRATIVE: CASE EVENT DATE: 20210715
